FAERS Safety Report 17902001 (Version 1)
Quarter: 2020Q2

REPORT INFORMATION
  Report Type: Report from Study
  Country: BR (occurrence: BR)
  Receive Date: 20200616
  Receipt Date: 20200616
  Transmission Date: 20200714
  Serious: Yes (Other)
  Sender: FDA-Public Use
  Company Number: BR-UCBSA-2020023739

PATIENT
  Age: 34 Year
  Sex: Female
  Weight: 86 kg

DRUGS (1)
  1. CERTOLIZUMAB PEGOL CD [Suspect]
     Active Substance: CERTOLIZUMAB PEGOL
     Indication: CROHN^S DISEASE
     Dosage: 400 MILLIGRAM, EV 15 DAYS
     Route: 058
     Dates: end: 201902

REACTIONS (2)
  - Maternal exposure before pregnancy [Unknown]
  - Abortion spontaneous [Unknown]

NARRATIVE: CASE EVENT DATE: 20191226
